FAERS Safety Report 23683043 (Version 1)
Quarter: 2024Q1

REPORT INFORMATION
  Report Type: Spontaneous
  Country: US (occurrence: None)
  Receive Date: 20240327
  Receipt Date: 20240327
  Transmission Date: 20240410
  Serious: Yes (unspecified)
  Sender: FDA-Public Use
  Company Number: None

PATIENT
  Age: 80 Year
  Sex: Female
  Weight: 57.6 kg

DRUGS (1)
  1. PROLIA [Suspect]
     Active Substance: DENOSUMAB
     Indication: Osteoporosis
     Dosage: 60 MG EVERY 6 MONTHS SUBCUTANEOUS?
     Route: 058
     Dates: start: 20230921

REACTIONS (4)
  - Tooth infection [None]
  - Device physical property issue [None]
  - Dental operation [None]
  - Infection [None]

NARRATIVE: CASE EVENT DATE: 20231002
